FAERS Safety Report 8486969 (Version 2)
Quarter: 2013Q2

REPORT INFORMATION
  Report Type: Spontaneous
  Country: US (occurrence: None)
  Receive Date: 20120314
  Receipt Date: 20120611
  Transmission Date: 20140414
  Serious: Yes (Hospitalization)
  Sender: FDA-Public Use
  Company Number: PHEH2011US011988

PATIENT
  Age: 53 Year
  Sex: Female

DRUGS (1)
  1. EXTAVIA [Suspect]
     Indication: MULTIPLE SCLEROSIS
     Route: 058
     Dates: start: 201106

REACTIONS (12)
  - CHEST PAIN [None]
  - Scratch [None]
  - Mass [None]
  - Pain in extremity [None]
  - Ataxia [None]
  - Familial tremor [None]
  - Back pain [None]
  - Urticaria [None]
  - Rash pruritic [None]
  - Injection site warmth [None]
  - Injection site discolouration [None]
  - Dizziness [None]
